FAERS Safety Report 12761010 (Version 1)
Quarter: 2016Q3

REPORT INFORMATION
  Report Type: Report from Study
  Country: CA (occurrence: CA)
  Receive Date: 20160919
  Receipt Date: 20160919
  Transmission Date: 20161109
  Serious: Yes (Death, Hospitalization)
  Sender: FDA-Public Use
  Company Number: CA-ASTRAZENECA-2016SE96507

PATIENT
  Sex: Male

DRUGS (10)
  1. ZOLADEX LA [Suspect]
     Active Substance: GOSERELIN ACETATE
     Indication: PROSTATE CANCER
     Route: 058
     Dates: start: 20140226
  2. ZOLADEX LA [Suspect]
     Active Substance: GOSERELIN ACETATE
     Indication: PROSTATE CANCER
     Route: 058
     Dates: start: 20160602
  3. ADALAT [Concomitant]
     Active Substance: NIFEDIPINE
     Route: 048
  4. ELTROXIN [Concomitant]
     Active Substance: LEVOTHYROXINE
  5. INSULIN [Concomitant]
     Active Substance: INSULIN NOS
     Dosage: 20 UNITS  EVERY MORNING
  6. INSULIN [Concomitant]
     Active Substance: INSULIN NOS
     Dosage: 10 UNITS  EVERY NIGHT
  7. CRESTOR [Concomitant]
     Active Substance: ROSUVASTATIN CALCIUM
  8. BICALUTAMIDE. [Concomitant]
     Active Substance: BICALUTAMIDE
  9. LOSARTAN. [Concomitant]
     Active Substance: LOSARTAN
  10. NOVOSPIROZINE [Concomitant]
     Dosage: 25/25 MG  DAILY

REACTIONS (2)
  - Death [Fatal]
  - Terminal state [Unknown]
